FAERS Safety Report 6974641-1 (Version None)
Quarter: 2010Q3

REPORT INFORMATION
  Report Type: 
  Country: None (occurrence: None)
  Receive Date: 20100909
  Receipt Date: 20081208
  Transmission Date: 20110219
  Serious: No
  Sender: FDA-Public Use
  Company Number: US-WYE-H07119208

PATIENT
  Sex: Female

DRUGS (4)
  1. PRISTIQ [Suspect]
     Indication: BIPOLAR DISORDER
     Route: 048
     Dates: start: 20081101, end: 20081201
  2. XANAX [Concomitant]
  3. LEVOTHYROXINE SODIUM [Concomitant]
  4. CARDIZEM [Concomitant]

REACTIONS (2)
  - PRURITUS [None]
  - PRURITUS GENITAL [None]
